FAERS Safety Report 19834944 (Version 1)
Quarter: 2021Q3

REPORT INFORMATION
  Report Type: Spontaneous
  Country: CN (occurrence: CN)
  Receive Date: 20210915
  Receipt Date: 20210915
  Transmission Date: 20211014
  Serious: Yes (Hospitalization)
  Sender: FDA-Public Use
  Company Number: CN-ASTRAZENECA-2021A723465

PATIENT
  Age: 66 Year
  Sex: Male
  Weight: 50 kg

DRUGS (1)
  1. TICAGRELOR. [Suspect]
     Active Substance: TICAGRELOR
     Indication: CHEST PAIN
     Route: 048
     Dates: start: 20210827, end: 20210830

REACTIONS (3)
  - Insomnia [Unknown]
  - Dyspnoea [Recovering/Resolving]
  - Chest discomfort [Recovering/Resolving]

NARRATIVE: CASE EVENT DATE: 20210827
